FAERS Safety Report 4861760-9 (Version None)
Quarter: 2005Q4

REPORT INFORMATION
  Report Type: 
  Country: None (occurrence: None)
  Receive Date: 20051220
  Receipt Date: 20051212
  Transmission Date: 20060501
  Serious: Yes (Hospitalization)
  Sender: FDA-Public Use
  Company Number: ES-MERCK-0512ESP00011

PATIENT
  Age: 52 Year
  Sex: Female

DRUGS (7)
  1. SINGULAIR [Suspect]
     Indication: ASTHMA
     Route: 048
     Dates: start: 20000101
  2. FLUTICASONE PROPIONATE [Concomitant]
     Indication: ASTHMA
     Route: 065
  3. CORTICOSTEROIDS (UNSPECIFIED) [Concomitant]
     Indication: ASTHMA
     Route: 065
  4. LEVOTHYROXINE SODIUM [Concomitant]
     Indication: THYROID DISORDER
     Route: 048
  5. RISEDRONATE SODIUM [Concomitant]
     Indication: OSTEOPOROSIS
     Route: 065
  6. HOMEOPATHIC MEDICATIONS (UNSPECIFIED) [Concomitant]
     Indication: NASAL POLYPS
     Route: 065
  7. [THERAPY UNSPECIFIED] [Concomitant]
     Indication: DETOXIFICATION
     Route: 065

REACTIONS (1)
  - ALLERGIC GRANULOMATOUS ANGIITIS [None]
